FAERS Safety Report 4589322-1 (Version None)
Quarter: 2005Q1

REPORT INFORMATION
  Report Type: 
  Country: None (occurrence: None)
  Receive Date: 20050217
  Receipt Date: 20050217
  Transmission Date: 20050727
  Serious: Yes (Other)
  Sender: FDA-Public Use
  Company Number: None

PATIENT
  Sex: Male

DRUGS (2)
  1. ACETYLCYSTEINE [Suspect]
     Indication: NEPHROPATHY
     Dosage: 4ML  ORAL
     Route: 048
     Dates: start: 20050214, end: 20050214
  2. ACETYLCYSTEINE [Suspect]
     Indication: PROPHYLAXIS
     Dosage: 4ML  ORAL
     Route: 048
     Dates: start: 20050214, end: 20050214

REACTIONS (1)
  - MEDICATION ERROR [None]
